FAERS Safety Report 24299010 (Version 2)
Quarter: 2024Q3

REPORT INFORMATION
  Report Type: Spontaneous
  Country: US (occurrence: US)
  Receive Date: 20240909
  Receipt Date: 20240925
  Transmission Date: 20241017
  Serious: Yes (Hospitalization, Disabling, Other)
  Sender: TEVA
  Company Number: US-TEVA-VS-3241030

PATIENT
  Age: 72 Year
  Sex: Female

DRUGS (5)
  1. BETAMETHASONE [Suspect]
     Active Substance: BETAMETHASONE
     Indication: Product used for unknown indication
     Route: 065
  2. COMBIPATCH [Suspect]
     Active Substance: ESTRADIOL\NORETHINDRONE ACETATE
     Indication: Atrophic vulvovaginitis
     Dosage: 50/140/ DOSE: 0.05/0.14 MILLIGRAM
     Route: 065
  3. CLOBETASOL [Suspect]
     Active Substance: CLOBETASOL
     Indication: Product used for unknown indication
     Route: 065
  4. ESTRADIOL [Suspect]
     Active Substance: ESTRADIOL
     Indication: Atrophic vulvovaginitis
     Route: 065
     Dates: start: 202402
  5. SUBOXONE [Suspect]
     Active Substance: BUPRENORPHINE HYDROCHLORIDE\NALOXONE HYDROCHLORIDE
     Indication: Product used for unknown indication
     Route: 060

REACTIONS (15)
  - Vaginal haemorrhage [Unknown]
  - Breast tenderness [Unknown]
  - Physical disability [Unknown]
  - Tooth loss [Unknown]
  - Vulvovaginal mycotic infection [Unknown]
  - Hyperhidrosis [Unknown]
  - Vulvovaginal burning sensation [Unknown]
  - Tinnitus [Unknown]
  - Abnormal faeces [Unknown]
  - Lichen sclerosus [Unknown]
  - Urinary tract infection [Unknown]
  - Wrong technique in product usage process [Unknown]
  - Bowel movement irregularity [Unknown]
  - Skin abrasion [Unknown]
  - Pruritus [Unknown]

NARRATIVE: CASE EVENT DATE: 20240101
